FAERS Safety Report 6808846-7 (Version None)
Quarter: 2010Q2

REPORT INFORMATION
  Report Type: 
  Country: None (occurrence: None)
  Receive Date: 20100630
  Receipt Date: 20091019
  Transmission Date: 20101027
  Serious: No
  Sender: FDA-Public Use
  Company Number: US-PFIZER INC-2009261267

PATIENT
  Sex: Male

DRUGS (1)
  1. VIAGRA [Suspect]
     Indication: ERECTILE DYSFUNCTION
     Dosage: UNK DOSE, AS NEEDED
     Dates: start: 20090701, end: 20090820

REACTIONS (4)
  - FEELING ABNORMAL [None]
  - MALAISE [None]
  - NAUSEA [None]
  - PRURITUS [None]
